FAERS Safety Report 6643778-9 (Version None)
Quarter: 2010Q1

REPORT INFORMATION
  Report Type: 
  Country: None (occurrence: None)
  Receive Date: 20100322
  Receipt Date: 20100312
  Transmission Date: 20100710
  Serious: Yes (Hospitalization)
  Sender: FDA-Public Use
  Company Number: US-ELI_LILLY_AND_COMPANY-US201002002065

PATIENT
  Sex: Female
  Weight: 85.714 kg

DRUGS (16)
  1. DULOXETINE HYDROCHLORIDE [Suspect]
     Indication: NEURALGIA
     Dosage: 60 MG, DAILY (1/D)
     Route: 048
     Dates: start: 20091014
  2. VERAPAMIL [Concomitant]
     Indication: HYPERTENSION
     Dosage: 120 MG, DAILY (1/D)
     Dates: start: 19930101
  3. DIAZEPAM [Concomitant]
     Indication: ANXIETY
     Dosage: 10 MG, DAILY (1/D)
     Dates: start: 20080101
  4. VESICARE [Concomitant]
     Indication: URINARY INCONTINENCE
     Dates: start: 20090101
  5. CELEBREX [Concomitant]
     Indication: ARTHRITIS
     Dosage: 200 MG, DAILY (1/D)
     Dates: start: 20080101
  6. FEBIRA [Concomitant]
     Indication: PROPHYLAXIS
     Dates: start: 20090101
  7. EFFEXOR XR [Concomitant]
     Indication: DEPRESSION
     Dosage: 150 MG, DAILY (1/D)
     Dates: start: 20070101
  8. LYRICA [Concomitant]
     Indication: ARTHRALGIA
     Dosage: 300 MG, DAILY (1/D)
     Dates: start: 20060101
  9. CHONDROITIN [Concomitant]
     Indication: PROPHYLAXIS
     Dosage: 1200 MG, UNK
     Dates: start: 20070101
  10. MSM [Concomitant]
     Indication: PROPHYLAXIS
     Dosage: 1000 MG, DAILY (1/D)
     Dates: start: 20070101
  11. SUDAFED 12 HOUR [Concomitant]
     Dates: start: 19950101
  12. GLUCOSAMINE [Concomitant]
     Indication: PROPHYLAXIS
     Dosage: 1500 MG, DAILY (1/D)
     Dates: start: 20080101
  13. PROMETRIUM [Concomitant]
     Indication: HORMONE REPLACEMENT THERAPY
     Dosage: 100 MG, DAILY (1/D)
     Dates: start: 20080322
  14. ESTRACE [Concomitant]
     Indication: MENOPAUSE
     Dosage: 42.5 G, EACH EVENING
     Dates: start: 20100107
  15. ZOCOR [Concomitant]
     Dosage: 80 MG, DAILY (1/D)
     Dates: start: 20100115
  16. ACTONEL [Concomitant]
     Indication: OSTEOPOROSIS
     Dosage: 35 MG, WEEKLY (1/W)
     Dates: start: 20100123

REACTIONS (1)
  - OSTEOARTHRITIS [None]
